FAERS Safety Report 7221679-5 (Version None)
Quarter: 2011Q1

REPORT INFORMATION
  Report Type: 
  Country: None (occurrence: None)
  Receive Date: 20110112
  Receipt Date: 20110106
  Transmission Date: 20110831
  Serious: Yes (Death)
  Sender: FDA-Public Use
  Company Number: US-JNJFOC-20110101893

PATIENT
  Age: 37 Year
  Sex: Female

DRUGS (14)
  1. FENTANYL CITRATE [Suspect]
     Indication: SUICIDE ATTEMPT
     Route: 048
  2. SIMVASTATIN [Suspect]
     Indication: SUICIDE ATTEMPT
     Route: 048
  3. GEMFIBROZIL [Suspect]
     Indication: SUICIDE ATTEMPT
     Route: 048
  4. RANITIDINE [Suspect]
     Indication: SUICIDE ATTEMPT
     Route: 048
  5. CLONAZEPAM [Suspect]
     Indication: SUICIDE ATTEMPT
     Route: 048
  6. LEVOTHYROXINE [Suspect]
     Indication: SUICIDE ATTEMPT
     Route: 048
  7. DULOXETINE [Suspect]
     Indication: SUICIDE ATTEMPT
     Route: 048
  8. PREDNISONE [Suspect]
     Indication: SUICIDE ATTEMPT
     Route: 048
  9. OXCARBAZEPINE [Suspect]
     Indication: SUICIDE ATTEMPT
     Route: 048
  10. TOPIRAMATE [Suspect]
     Indication: SUICIDE ATTEMPT
     Route: 048
  11. METFORMIN [Suspect]
     Indication: SUICIDE ATTEMPT
     Route: 048
  12. BUPROPION [Suspect]
     Indication: SUICIDE ATTEMPT
     Route: 048
  13. ETHANOL [Suspect]
     Indication: SUICIDE ATTEMPT
     Route: 048
  14. ARIPIPRAZOLE [Suspect]
     Indication: SUICIDE ATTEMPT
     Route: 048

REACTIONS (5)
  - TOXICITY TO VARIOUS AGENTS [None]
  - COMPLETED SUICIDE [None]
  - RESPIRATORY ARREST [None]
  - INTENTIONAL DRUG MISUSE [None]
  - CARDIAC ARREST [None]
